FAERS Safety Report 17975448 (Version 3)
Quarter: 2022Q1

REPORT INFORMATION
  Report Type: Spontaneous
  Country: FR (occurrence: FR)
  Receive Date: 20200702
  Receipt Date: 20220331
  Transmission Date: 20220423
  Serious: Yes (Hospitalization, Other)
  Sender: FDA-Public Use
  Company Number: FR-CHEPLA-2020FR056

PATIENT
  Age: 77 Year
  Sex: Male

DRUGS (6)
  1. SOTALOL [Suspect]
     Active Substance: SOTALOL
     Indication: Product used for unknown indication
     Dosage: 80 MILLIGRAM, Q2D (ONE TABLET IN THE MORNING AND IN THE EVENING)/160 MG, QD
     Route: 048
     Dates: start: 202001
  2. SOTALOL [Suspect]
     Active Substance: SOTALOL
     Dosage: 160 MILLIGRAM, QD (ONE TABLET IN THE MORNING AND IN THE EVENING)
     Route: 048
     Dates: start: 202001
  3. FUROSEMIDE [Suspect]
     Active Substance: FUROSEMIDE
     Indication: Product used for unknown indication
     Dosage: 20 MILLIGRAM, QD (IN THE MORNING)
     Route: 048
  4. FUROSEMIDE [Suspect]
     Active Substance: FUROSEMIDE
     Dosage: 20 MILLIGRAM
     Route: 048
  5. ELIQUIS [Suspect]
     Active Substance: APIXABAN
     Indication: Product used for unknown indication
     Dosage: 5 MILLIGRAM, Q2D (ONE TABLET IN THE MORNING AND IN THE EVENING)/10 MG QD
     Route: 048
  6. ELIQUIS [Suspect]
     Active Substance: APIXABAN
     Dosage: 10 MILLIGRAM, QD(5 MILLIGRAM, BID)
     Route: 048

REACTIONS (7)
  - Hypokinesia [Unknown]
  - Dyspnoea [Unknown]
  - Pain in extremity [Unknown]
  - Dizziness postural [Unknown]
  - Gait disturbance [Unknown]
  - Chest discomfort [Unknown]
  - Inflammation [Unknown]

NARRATIVE: CASE EVENT DATE: 20200101
